FAERS Safety Report 20513520 (Version 1)
Quarter: 2022Q1

REPORT INFORMATION
  Report Type: Spontaneous
  Country: US (occurrence: US)
  Receive Date: 20220224
  Receipt Date: 20220224
  Transmission Date: 20220424
  Serious: No
  Sender: FDA-Public Use
  Company Number: US-AMNEAL PHARMACEUTICALS-2021-AMRX-04463

PATIENT
  Age: 75 Year
  Sex: Male
  Weight: 93.88 kg

DRUGS (3)
  1. RYTARY [Suspect]
     Active Substance: CARBIDOPA\LEVODOPA
     Indication: Parkinson^s disease
     Dosage: 48.75/195 MG 4 CAPSULES, DAILY, 2 CAPS IN MORNING AT BREAKFAST, 1 AT LUNCH AND 1 AT DINNER
     Route: 048
     Dates: start: 202110, end: 2021
  2. RYTARY [Suspect]
     Active Substance: CARBIDOPA\LEVODOPA
     Dosage: 36.25/145 MG 2 CAPSULES, DAILY, 1 CAPS AT LUNCH AND 1 CAPS AT DINNER
     Route: 048
     Dates: start: 202110, end: 2021
  3. VIDAZA [Suspect]
     Active Substance: AZACITIDINE
     Indication: Myelodysplastic syndrome
     Dosage: TWICE A DAY FOR A WEEK AND OFF FOR 3 WEEKS
     Route: 065
     Dates: start: 202110

REACTIONS (3)
  - Disturbance in attention [Unknown]
  - Feeling abnormal [Unknown]
  - Anxiety [Unknown]

NARRATIVE: CASE EVENT DATE: 20211001
